FAERS Safety Report 6451282-6 (Version None)
Quarter: 2009Q4

REPORT INFORMATION
  Report Type: 
  Country: None (occurrence: None)
  Receive Date: 20091123
  Receipt Date: 20090923
  Transmission Date: 20100525
  Serious: Yes (Hospitalization)
  Sender: FDA-Public Use
  Company Number: US-AMGEN-QUU366097

PATIENT
  Sex: Female

DRUGS (2)
  1. ENBREL [Suspect]
     Indication: SYSTEMIC LUPUS ERYTHEMATOSUS
     Route: 058
  2. IMURAN [Concomitant]

REACTIONS (2)
  - SKIN LACERATION [None]
  - STAPHYLOCOCCAL INFECTION [None]
